FAERS Safety Report 9095559 (Version 1)
Quarter: 2013Q1

REPORT INFORMATION
  Report Type: Spontaneous
  Country: FR (occurrence: FR)
  Receive Date: 20130219
  Receipt Date: 20130219
  Transmission Date: 20140127
  Serious: Yes (Other)
  Sender: FDA-Public Use
  Company Number: PHHY2013FR016254

PATIENT
  Age: 56 Year
  Sex: 0

DRUGS (2)
  1. AMOXICILLIN+CLAVULANATE [Suspect]
     Indication: ANTIBIOTIC PROPHYLAXIS
     Dosage: 1 DF, UNK
     Route: 042
     Dates: start: 20120106
  2. CLAVULANIC ACID [Suspect]
     Indication: ANTIBIOTIC PROPHYLAXIS
     Dates: start: 20120106

REACTIONS (3)
  - Oliguria [Recovering/Resolving]
  - Haematuria [Recovering/Resolving]
  - Medication crystals in urine [Recovering/Resolving]
